FAERS Safety Report 8520829 (Version 11)
Quarter: 2012Q4

REPORT INFORMATION
  Report Type: 
  Country: US (occurrence: US)
  Receive Date: 20120419
  Receipt Date: 20121101
  Transmission Date: 20130627
  Serious: Yes (Hospitalization, Other)
  Sender: FDA-Public Use
  Company Number: US-ASTRAZENECA-2011SE41556

PATIENT
  Age: 53 Year
  Sex: Male
  Weight: 104.3 kg

DRUGS (22)
  1. NEXIUM [Suspect]
     Indication: GASTROOESOPHAGEAL REFLUX DISEASE
     Dosage: EVERY DAY
     Route: 048
     Dates: start: 2001
  2. NEXIUM [Suspect]
     Indication: GASTROOESOPHAGEAL REFLUX DISEASE
     Route: 048
     Dates: start: 2001
  3. NEXIUM [Suspect]
     Indication: GASTROOESOPHAGEAL REFLUX DISEASE
     Route: 048
     Dates: start: 20060412
  4. NEXIUM [Suspect]
     Indication: GASTROOESOPHAGEAL REFLUX DISEASE
     Route: 048
     Dates: start: 201008
  5. PRILOSEC [Concomitant]
     Indication: GASTROOESOPHAGEAL REFLUX DISEASE
  6. ROLAIDS [Concomitant]
  7. PEPTO-BISMOL [Concomitant]
     Dosage: ON OCCASION
  8. OSCAL [Concomitant]
     Indication: OSTEOPOROSIS
  9. BONIVA [Concomitant]
     Indication: OSTEOPOROSIS
  10. PROPRANOLOL [Concomitant]
  11. LOSARTAN [Concomitant]
  12. LORTAB [Concomitant]
     Dates: start: 20110706
  13. LEVAQUIN [Concomitant]
     Route: 048
     Dates: start: 20100413
  14. ACTONEL [Concomitant]
     Dates: start: 201008
  15. ALPRAZOLAM/XANAX [Concomitant]
     Dates: start: 20050707
  16. ALPRAZOLAM/XANAX [Concomitant]
     Dates: start: 201008
  17. HYDROCODONE [Concomitant]
     Dosage: 7.5 MG EVERY SIX HOURS AS NEEDED
     Dates: start: 201008
  18. AMBIEN [Concomitant]
     Dates: start: 201008
  19. WARFARIN SODIUM [Concomitant]
     Dates: start: 200409
  20. DOCUSATE SODIUM [Concomitant]
     Dates: start: 200409
  21. PROTONIX [Concomitant]
     Dates: start: 200409
  22. ULTRACET [Concomitant]
     Dosage: 1 TO 2
     Dates: start: 20050707

REACTIONS (19)
  - Traumatic fracture [Unknown]
  - Meniscus injury [Unknown]
  - Tibia fracture [Unknown]
  - Suicidal ideation [Unknown]
  - Road traffic accident [Unknown]
  - Pulmonary embolism [Unknown]
  - Lower limb fracture [Unknown]
  - Osteoporosis [Unknown]
  - Bone loss [Unknown]
  - Bone pain [Unknown]
  - Anxiety [Unknown]
  - Hypovitaminosis [Unknown]
  - Osteoarthritis [Unknown]
  - Osteopenia [Unknown]
  - Lateral patellar compression syndrome [Unknown]
  - Complex regional pain syndrome [Recovering/Resolving]
  - Joint dislocation [Unknown]
  - Anxiety disorder [Unknown]
  - Thrombosis [Unknown]
